FAERS Safety Report 24654971 (Version 1)
Quarter: 2024Q4

REPORT INFORMATION
  Report Type: Spontaneous
  Country: IR (occurrence: IR)
  Receive Date: 20241122
  Receipt Date: 20241122
  Transmission Date: 20250115
  Serious: Yes (Death)
  Sender: BIOMARIN
  Company Number: IR-BIOMARINAP-IR-2024-162044

PATIENT

DRUGS (1)
  1. VIMIZIM [Suspect]
     Active Substance: ELOSULFASE ALFA
     Indication: Product used for unknown indication
     Route: 065

REACTIONS (1)
  - Cardiac disorder [Fatal]
